FAERS Safety Report 18017766 (Version 1)
Quarter: 2020Q3

REPORT INFORMATION
  Report Type: Spontaneous
  Country: IN (occurrence: IN)
  Receive Date: 20200713
  Receipt Date: 20200713
  Transmission Date: 20201103
  Serious: Yes (Other)
  Sender: FDA-Public Use
  Company Number: IN-ANIPHARMA-2020-IN-000085

PATIENT
  Sex: Male

DRUGS (1)
  1. ROSIGLITAZONE MALEATE (NON?SPECIFIC) [Suspect]
     Active Substance: ROSIGLITAZONE MALEATE
     Indication: PRODUCT USED FOR UNKNOWN INDICATION
     Route: 015

REACTIONS (7)
  - Limb deformity [Unknown]
  - Foetal exposure during pregnancy [Unknown]
  - Bone density decreased [Unknown]
  - Spinal compression fracture [Unknown]
  - Osteopenia [Unknown]
  - Kyphosis [Unknown]
  - Multiple fractures [Unknown]
